FAERS Safety Report 16650852 (Version 1)
Quarter: 2019Q3

REPORT INFORMATION
  Report Type: Spontaneous
  Country: US (occurrence: US)
  Receive Date: 20190617
  Receipt Date: 20190617
  Transmission Date: 20191004
  Serious: Yes (Disabling)
  Sender: FDA-Public Use
  Company Number: None

PATIENT
  Sex: Female

DRUGS (9)
  1. DULOXETINE. [Concomitant]
     Active Substance: DULOXETINE
  2. AMBIEN [Concomitant]
     Active Substance: ZOLPIDEM TARTRATE
  3. OMEPRAZOLE. [Concomitant]
     Active Substance: OMEPRAZOLE
  4. ACETAMINOPHEN-COD #3 [Concomitant]
     Active Substance: ACETAMINOPHEN\CODEINE PHOSPHATE
  5. COGENTIN [Suspect]
     Active Substance: BENZTROPINE MESYLATE
     Indication: DEPRESSION
     Dosage: ?          QUANTITY:1 PILL;?
     Route: 048
     Dates: start: 201801
  6. ZANOPHEN [Concomitant]
  7. BENZTROPINE. [Concomitant]
     Active Substance: BENZTROPINE
  8. RISPERIDONE. [Concomitant]
     Active Substance: RISPERIDONE
  9. BUPROPION. [Concomitant]
     Active Substance: BUPROPION

REACTIONS (1)
  - Amnesia [None]
